FAERS Safety Report 7510412-5 (Version None)
Quarter: 2011Q2

REPORT INFORMATION
  Report Type: 
  Country: None (occurrence: None)
  Receive Date: 20110527
  Receipt Date: 20110525
  Transmission Date: 20111010
  Serious: Yes (Other)
  Sender: FDA-Public Use
  Company Number: FR-MERCK-1007FRA00067

PATIENT
  Age: 40 Year
  Sex: Female

DRUGS (4)
  1. CLONAZEPAM [Concomitant]
     Indication: DIABETIC NEUROPATHY
     Route: 048
     Dates: start: 20100301, end: 20100701
  2. JANUVIA [Suspect]
     Indication: TYPE 2 DIABETES MELLITUS
     Route: 048
     Dates: start: 20091001, end: 20100624
  3. METFORMIN [Concomitant]
     Indication: TYPE 2 DIABETES MELLITUS
     Route: 048
     Dates: start: 20050101, end: 20100624
  4. GLIMEPIRIDE [Concomitant]
     Indication: TYPE 2 DIABETES MELLITUS
     Route: 048
     Dates: start: 20080701, end: 20100624

REACTIONS (3)
  - DRUG EXPOSURE DURING PREGNANCY [None]
  - DELAYED DELIVERY [None]
  - CAESAREAN SECTION [None]
